FAERS Safety Report 6142326-X (Version None)
Quarter: 2009Q2

REPORT INFORMATION
  Report Type: 
  Country: None (occurrence: None)
  Receive Date: 20090403
  Receipt Date: 20090319
  Transmission Date: 20091009
  Serious: Yes (Death)
  Sender: FDA-Public Use
  Company Number: IT-PFIZER INC-2009179055

PATIENT

DRUGS (17)
  1. BLINDED *PLACEBO [Suspect]
     Dosage: UNK
     Route: 042
     Dates: start: 20090220, end: 20090304
  2. BLINDED ANIDULAFUNGIN [Suspect]
     Dosage: UNK
     Route: 042
     Dates: start: 20090220, end: 20090304
  3. VORICONAZOLE [Suspect]
     Dosage: UNK
     Route: 042
     Dates: start: 20090220, end: 20090305
  4. LINEZOLID [Concomitant]
     Dosage: UNK
     Route: 042
     Dates: start: 20090302, end: 20090317
  5. MEROPENEM [Concomitant]
     Dosage: UNK
     Route: 042
     Dates: start: 20090317, end: 20090318
  6. ACYCLOVIR [Concomitant]
     Dosage: UNK
     Route: 042
     Dates: start: 20090303, end: 20090315
  7. COLISTIN [Concomitant]
     Dosage: UNK
     Route: 042
     Dates: start: 20090304, end: 20090310
  8. CYCLOSPORINE [Concomitant]
     Dosage: UNK
     Route: 042
     Dates: start: 20090308, end: 20090310
  9. CASPOFUNGIN [Concomitant]
     Dosage: UNK
     Route: 042
     Dates: start: 20090305, end: 20090317
  10. FUROSEMIDE [Concomitant]
     Dosage: UNK
     Dates: start: 20090220, end: 20090312
  11. MEROPENEM [Concomitant]
     Dosage: UNK
     Route: 042
     Dates: start: 20090224, end: 20090316
  12. PIPERACILLIN SODIUM AND TAZOBACTAM SODIUM [Concomitant]
     Dosage: UNK
     Route: 042
     Dates: start: 20090316, end: 20090317
  13. REVIVAN [Concomitant]
     Dosage: UNK
     Route: 042
     Dates: start: 20090304, end: 20090304
  14. REVIVAN [Concomitant]
     Dosage: UNK
     Route: 042
     Dates: start: 20090317, end: 20090318
  15. EMAGEL [Concomitant]
     Dosage: UNK
     Route: 042
     Dates: start: 20090317, end: 20090318
  16. NEUPOGEN [Concomitant]
     Dosage: UNK
     Route: 058
     Dates: start: 20090307, end: 20090307
  17. OMEPRAZOLE [Concomitant]
     Dosage: UNK
     Route: 042
     Dates: start: 20090313, end: 20090318

REACTIONS (1)
  - SEPTIC SHOCK [None]
